FAERS Safety Report 6900539-0 (Version None)
Quarter: 2010Q3

REPORT INFORMATION
  Report Type: 
  Country: None (occurrence: None)
  Receive Date: 20100730
  Receipt Date: 20100528
  Transmission Date: 20110219
  Serious: No
  Sender: FDA-Public Use
  Company Number: 012772

PATIENT
  Age: 23 Year
  Sex: Male

DRUGS (2)
  1. XYZAL [Suspect]
     Indication: RHINITIS ALLERGIC
     Dosage: 1 DF
     Dates: start: 20100514, end: 20100520
  2. XYLOMETAZOLINE HYDROCHLORIDE (XYLLO MEPHA) [Suspect]

REACTIONS (1)
  - ABDOMINAL PAIN [None]
